FAERS Safety Report 10178348 (Version 3)
Quarter: 2014Q2

REPORT INFORMATION
  Report Type: Report from Study
  Country: US (occurrence: US)
  Receive Date: 20140519
  Receipt Date: 20140605
  Transmission Date: 20141212
  Serious: Yes (Other)
  Sender: FDA-Public Use
  Company Number: US-ROCHE-558588

PATIENT
  Sex: 0

DRUGS (3)
  1. BEVACIZUMAB [Suspect]
     Indication: AGE-RELATED MACULAR DEGENERATION
     Route: 050
  2. RANIBIZUMAB [Suspect]
     Indication: AGE-RELATED MACULAR DEGENERATION
     Route: 050
  3. POVIDONE-IODINE [Concomitant]
     Indication: PREMEDICATION

REACTIONS (4)
  - Staphylococcal infection [Recovering/Resolving]
  - Endophthalmitis [Recovering/Resolving]
  - Suspected transmission of an infectious agent via product [Unknown]
  - Off label use [Unknown]
